FAERS Safety Report 6385392-9 (Version None)
Quarter: 2009Q4

REPORT INFORMATION
  Report Type: 
  Country: None (occurrence: None)
  Receive Date: 20091002
  Receipt Date: 20080905
  Transmission Date: 20100525
  Serious: No
  Sender: FDA-Public Use
  Company Number: US-ASTRAZENECA-2008UW18430

PATIENT
  Age: 57 Year
  Sex: Female
  Weight: 89.8 kg

DRUGS (4)
  1. ARIMIDEX [Suspect]
     Indication: BREAST CANCER
     Route: 048
     Dates: start: 20080323
  2. TENORETIC 100 [Concomitant]
     Route: 048
  3. POTASSIUM CHLORIDE [Concomitant]
  4. VITAMINS [Concomitant]

REACTIONS (3)
  - CYSTITIS [None]
  - FEELING HOT [None]
  - THERAPEUTIC RESPONSE UNEXPECTED [None]
